FAERS Safety Report 7770210-4 (Version None)
Quarter: 2011Q3

REPORT INFORMATION
  Report Type: 
  Country: None (occurrence: None)
  Receive Date: 20110922
  Receipt Date: 20100913
  Transmission Date: 20111222
  Serious: No
  Sender: FDA-Public Use
  Company Number: US-ASTRAZENECA-2010SE42791

PATIENT
  Age: 637 Month
  Sex: Female

DRUGS (5)
  1. WELLBUTRIN [Concomitant]
  2. NEXIUM [Concomitant]
  3. SEROQUEL [Suspect]
     Route: 048
  4. ALPRAZOLAM [Concomitant]
  5. SEROQUEL [Suspect]
     Indication: BIPOLAR DISORDER
     Route: 048
     Dates: start: 20000101

REACTIONS (2)
  - INSOMNIA [None]
  - DRUG DOSE OMISSION [None]
